FAERS Safety Report 14183409 (Version 1)
Quarter: 2017Q4

REPORT INFORMATION
  Report Type: Spontaneous
  Country: CN (occurrence: CN)
  Receive Date: 20171113
  Receipt Date: 20171113
  Transmission Date: 20180321
  Serious: Yes (Other)
  Sender: FDA-Public Use
  Company Number: CN-JNJFOC-20171109697

PATIENT

DRUGS (2)
  1. RISPERIDONE. [Suspect]
     Active Substance: RISPERIDONE
     Indication: SCHIZOPHRENIA
     Route: 065
  2. BUSPIRONE [Suspect]
     Active Substance: BUSPIRONE HYDROCHLORIDE
     Indication: SCHIZOPHRENIA
     Route: 065

REACTIONS (8)
  - Blood test abnormal [Unknown]
  - Electrocardiogram abnormal [Unknown]
  - Hepatic function abnormal [Unknown]
  - Lipids abnormal [Unknown]
  - Blood glucose abnormal [Unknown]
  - Tremor [Unknown]
  - Renal impairment [Unknown]
  - Blood prolactin abnormal [Unknown]
